FAERS Safety Report 4487460-5 (Version None)
Quarter: 2004Q3

REPORT INFORMATION
  Report Type: 
  Country: None (occurrence: None)
  Receive Date: 20040921
  Receipt Date: 20040427
  Transmission Date: 20050211
  Serious: Yes (Death, Hospitalization)
  Sender: FDA-Public Use
  Company Number: 163-20785-04040738 (0)

PATIENT
  Age: 45 Year
  Sex: Male
  Weight: 109.3169 kg

DRUGS (2)
  1. THALOMID [Suspect]
     Indication: ASTROCYTOMA
     Dosage: ORAL
     Route: 048
     Dates: start: 20040315, end: 20040407
  2. PROCARBAZINE (PROCARBAZINE) (INJECTION) [Suspect]
     Indication: ASTROCYTOMA
     Dates: start: 20040315, end: 20040319

REACTIONS (5)
  - AGITATION [None]
  - APHASIA [None]
  - DEATH [None]
  - DISEASE PROGRESSION [None]
  - VOMITING [None]
